FAERS Safety Report 7157460-5 (Version None)
Quarter: 2010Q4

REPORT INFORMATION
  Report Type: 
  Country: None (occurrence: None)
  Receive Date: 20101214
  Receipt Date: 20101208
  Transmission Date: 20110411
  Serious: Yes (Other)
  Sender: FDA-Public Use
  Company Number: B0685563A

PATIENT
  Sex: Female

DRUGS (7)
  1. FLIXOTIDE [Suspect]
     Dosage: 250MCG TWICE PER DAY
     Route: 065
     Dates: start: 20050101, end: 20101101
  2. SPIRIVA [Concomitant]
     Dates: start: 20100801
  3. OMEPRAZOLE [Concomitant]
     Dates: start: 20060101
  4. METOPROLOL SUCCINATE [Concomitant]
     Dates: start: 20060101
  5. DIOVAN [Concomitant]
     Dosage: 80MG PER DAY
     Dates: start: 20060101
  6. BUMETANIDE [Concomitant]
     Dates: start: 20060101
  7. CRESTOR [Concomitant]
     Dates: start: 20060101

REACTIONS (2)
  - ANGIOEDEMA [None]
  - ORAL CANDIDIASIS [None]
